FAERS Safety Report 6104073-X (Version None)
Quarter: 2009Q1

REPORT INFORMATION
  Report Type: 
  Country: None (occurrence: None)
  Receive Date: 20090302
  Receipt Date: 20090224
  Transmission Date: 20090719
  Serious: Yes (Hospitalization)
  Sender: FDA-Public Use
  Company Number: 2009GR_BP0067

PATIENT
  Age: 73 Year
  Sex: Male

DRUGS (2)
  1. TERBINAFINE HCL [Suspect]
     Indication: ONYCHOMYCOSIS
     Dosage: 250 MG (250 MG, 1 IN 1 D) ORAL
     Route: 048
     Dates: start: 20080613, end: 20080620
  2. DIAMICRON (GLICLAZIDE) [Concomitant]

REACTIONS (2)
  - POLYMYALGIA RHEUMATICA [None]
  - WEIGHT DECREASED [None]
